FAERS Safety Report 8571032-7 (Version None)
Quarter: 2012Q3

REPORT INFORMATION
  Report Type: 
  Country: None (occurrence: None)
  Receive Date: 20120806
  Receipt Date: 20120731
  Transmission Date: 20120928
  Serious: Yes (Hospitalization)
  Sender: FDA-Public Use
  Company Number: DE-009507513-1208DEU000613

PATIENT

DRUGS (2)
  1. NUVARING [Suspect]
     Dosage: 1 DF, UNK
     Route: 067
     Dates: start: 20120601
  2. NUVARING [Suspect]
     Indication: CONTRACEPTION
     Dosage: 1 DF, UNK
     Route: 067
     Dates: start: 20060101, end: 20120501

REACTIONS (1)
  - BLADDER PAIN [None]
